FAERS Safety Report 22071152 (Version 3)
Quarter: 2023Q1

REPORT INFORMATION
  Report Type: Spontaneous
  Country: JP (occurrence: JP)
  Receive Date: 20230307
  Receipt Date: 20230310
  Transmission Date: 20230418
  Serious: Yes (Other)
  Sender: FDA-Public Use
  Company Number: JP-MLMSERVICE-20230220-4100460-1

PATIENT
  Age: 57 Year
  Sex: Male
  Weight: 68 kg

DRUGS (4)
  1. GEMCITABINE HYDROCHLORIDE [Suspect]
     Active Substance: GEMCITABINE HYDROCHLORIDE
     Indication: Pancreatic fistula
     Dosage: BIWEEKLY GEM 1,600 MG/BODY
     Dates: start: 201901, end: 202110
  2. GEMCITABINE HYDROCHLORIDE [Suspect]
     Active Substance: GEMCITABINE HYDROCHLORIDE
     Indication: Invasive ductal breast carcinoma
  3. PACLITAXEL [Suspect]
     Active Substance: PACLITAXEL
     Indication: Invasive ductal breast carcinoma
     Dosage: BIWEEKLY NAB-PTX 200 MG/BODY
     Dates: start: 201901, end: 202110
  4. PACLITAXEL [Suspect]
     Active Substance: PACLITAXEL
     Indication: Pancreatic fistula

REACTIONS (1)
  - Macular oedema [Unknown]

NARRATIVE: CASE EVENT DATE: 20211001
